FAERS Safety Report 4288476-4 (Version None)
Quarter: 2004Q1

REPORT INFORMATION
  Report Type: 
  Country: None (occurrence: None)
  Receive Date: 20040205
  Receipt Date: 20040123
  Transmission Date: 20041129
  Serious: Yes (Other)
  Sender: FDA-Public Use
  Company Number: USA040157232

PATIENT
  Age: 52 Year
  Sex: Female
  Weight: 127 kg

DRUGS (15)
  1. HUMULIN 70/30 [Suspect]
     Dosage: 185 U/DAY
  2. HUMALOG [Suspect]
     Dosage: 30 U/3 DAY
     Dates: start: 20040101
  3. HUMULIN N [Suspect]
  4. HUMULIN L [Suspect]
  5. ASPIRIN [Concomitant]
  6. FLAX SEED OIL [Concomitant]
  7. CHROMIUM [Concomitant]
  8. FIBER [Concomitant]
  9. METOLAZONE [Concomitant]
  10. DIGOXIN [Concomitant]
  11. SOTALOL HYDROCHLORIDE [Concomitant]
  12. FUROSEMIDE [Concomitant]
  13. ENALAPRIL MALEATE [Concomitant]
  14. OMEPRAZOLE [Concomitant]
  15. VALDECOXIB [Concomitant]

REACTIONS (8)
  - ARTHROPATHY [None]
  - BACK DISORDER [None]
  - BLOOD GLUCOSE FLUCTUATION [None]
  - BLOOD TRIGLYCERIDES INCREASED [None]
  - CARDIAC FAILURE CONGESTIVE [None]
  - DIVERTICULUM [None]
  - INSULIN RESISTANCE [None]
  - ROAD TRAFFIC ACCIDENT [None]
